FAERS Safety Report 8458726-9 (Version None)
Quarter: 2012Q2

REPORT INFORMATION
  Report Type: 
  Country: None (occurrence: None)
  Receive Date: 20120622
  Receipt Date: 20120619
  Transmission Date: 20120825
  Serious: Yes (Other)
  Sender: FDA-Public Use
  Company Number: FR-SANOFI-AVENTIS-2012SA044257

PATIENT

DRUGS (9)
  1. GRANULOCYTE COLONY STIMULATING FACTOR [Concomitant]
     Indication: PROPHYLAXIS
     Dosage: ON DAYS 7-12 OF THE FIRST CYCLE
     Route: 058
  2. FLUOROURACIL [Suspect]
     Dosage: 46 HOUR CONTINOUS INFUSION, DAY 1 OF EACH 2 WEEK CYCLE
     Route: 065
  3. OXALIPLATIN [Suspect]
     Dosage: FOR 120 MINUTES, DAY 1 OF EACH 2 WEEK CYCLE
     Route: 042
  4. FLUOROURACIL [Suspect]
     Dosage: DAY 1 OF EACH 2 WEEK CYCLE
     Route: 065
  5. CETUXIMAB [Suspect]
     Dosage: OVER ONE HOUR
     Route: 065
  6. CETUXIMAB [Suspect]
     Dosage: OVER 2 HOURS ON DAY 1 OF THE FIRST WEEK
     Route: 042
  7. LEUCOVORIN CALCIUM [Suspect]
     Dosage: OVER 120 MINUTES, DAY 1 OF EACH 2 WEEK CYCLE
     Route: 042
  8. IRINOTECAN HCL [Suspect]
     Dosage: OVER 90 MINUTES, ON DAY 1 OF EACH TWO WEEK CYCLE
     Route: 042
  9. ANTIHISTAMINES [Concomitant]
     Indication: ALLERGY PROPHYLAXIS
     Dosage: BEFORE CITUXIMAB ADMINISTRATION

REACTIONS (1)
  - HAEMOGLOBIN ABNORMAL [None]
